FAERS Safety Report 6763972-6 (Version None)
Quarter: 2010Q2

REPORT INFORMATION
  Report Type: 
  Country: None (occurrence: None)
  Receive Date: 20100610
  Receipt Date: 20100601
  Transmission Date: 20101027
  Serious: Yes (Other)
  Sender: FDA-Public Use
  Company Number: US-JNJFOC-20100600858

PATIENT
  Age: 23 Year
  Sex: Female

DRUGS (1)
  1. MONONESSA [Suspect]
     Indication: CONTRACEPTION
     Route: 048

REACTIONS (7)
  - ABORTION SPONTANEOUS [None]
  - DRUG EXPOSURE DURING PREGNANCY [None]
  - MENOMETRORRHAGIA [None]
  - OVARIAN CYST [None]
  - PELVIC PAIN [None]
  - POLYMENORRHOEA [None]
  - PREGNANCY ON ORAL CONTRACEPTIVE [None]
